FAERS Safety Report 23386145 (Version 8)
Quarter: 2025Q3

REPORT INFORMATION
  Report Type: Spontaneous
  Country: EU (occurrence: EU)
  Receive Date: 20240110
  Receipt Date: 20250806
  Transmission Date: 20251021
  Serious: Yes (Hospitalization, Other)
  Sender: CELLTRION
  Company Number: EU-CELLTRION INC.-2024FR000305

PATIENT

DRUGS (39)
  1. RITUXIMAB [Suspect]
     Active Substance: RITUXIMAB
     Indication: Diffuse large B-cell lymphoma stage III
     Route: 042
     Dates: start: 20231027, end: 20231027
  2. CARBOPLATIN [Suspect]
     Active Substance: CARBOPLATIN
     Indication: Diffuse large B-cell lymphoma stage III
     Route: 042
     Dates: start: 20231028, end: 20231028
  3. EPCORITAMAB [Suspect]
     Active Substance: EPCORITAMAB
     Indication: Diffuse large B-cell lymphoma stage III
     Route: 058
     Dates: start: 20231030, end: 20231030
  4. EPCORITAMAB [Suspect]
     Active Substance: EPCORITAMAB
     Route: 058
     Dates: start: 20231106, end: 20231106
  5. EPCORITAMAB [Suspect]
     Active Substance: EPCORITAMAB
     Route: 058
     Dates: start: 20231113
  6. EPCORITAMAB [Suspect]
     Active Substance: EPCORITAMAB
     Indication: Diffuse large B-cell lymphoma stage III
     Route: 058
     Dates: start: 20231030, end: 20231030
  7. EPCORITAMAB [Suspect]
     Active Substance: EPCORITAMAB
     Route: 058
     Dates: start: 20231106, end: 20231106
  8. EPCORITAMAB [Suspect]
     Active Substance: EPCORITAMAB
     Route: 058
     Dates: start: 20231113
  9. ETOPOSIDE [Suspect]
     Active Substance: ETOPOSIDE
     Indication: Diffuse large B-cell lymphoma stage III
     Route: 042
     Dates: start: 20231027, end: 20231029
  10. IFOSFAMIDE [Suspect]
     Active Substance: IFOSFAMIDE
     Indication: Diffuse large B-cell lymphoma stage III
     Route: 042
     Dates: start: 20231028, end: 20231029
  11. FOLIC ACID [Concomitant]
     Active Substance: FOLIC ACID
     Indication: Anaemia
     Route: 048
     Dates: start: 20231026
  12. ACUPAN [Concomitant]
     Active Substance: NEFOPAM HYDROCHLORIDE
     Indication: Phlebitis
     Route: 048
     Dates: start: 20231114, end: 20231114
  13. AMOROLFINE [Concomitant]
     Active Substance: AMOROLFINE
     Dosage: 5%, EVERY 1 WEEK (5 PERCENT, WEEKLY)
     Route: 065
     Dates: start: 20230909
  14. AZITHROMYCIN [Concomitant]
     Active Substance: AZITHROMYCIN
     Indication: Abdominal pain
     Route: 048
     Dates: start: 20231119, end: 20231120
  15. BACTRIM [Concomitant]
     Active Substance: SULFAMETHOXAZOLE\TRIMETHOPRIM
     Indication: Prophylaxis
     Route: 048
     Dates: start: 20231028
  16. SODIUM BICARBONATE [Concomitant]
     Active Substance: SODIUM BICARBONATE
     Indication: Prophylaxis
     Route: 065
     Dates: start: 20231027
  17. BISOPROLOL [Concomitant]
     Active Substance: BISOPROLOL
     Route: 048
     Dates: start: 20230218
  18. CICLOPIROX [Concomitant]
     Active Substance: CICLOPIROX
     Route: 065
     Dates: start: 20230809
  19. FILGRASTIM [Concomitant]
     Active Substance: FILGRASTIM
     Indication: Prophylaxis
     Route: 058
     Dates: start: 20231101, end: 20231105
  20. LANSOPRAZOLE [Concomitant]
     Active Substance: LANSOPRAZOLE
     Indication: Prophylaxis
     Route: 048
     Dates: start: 20231023
  21. METRONIDAZOLE [Concomitant]
     Active Substance: METRONIDAZOLE
     Indication: Abdominal pain
     Route: 042
     Dates: start: 20231119, end: 20231120
  22. ONDANSETRON [Concomitant]
     Active Substance: ONDANSETRON
     Indication: Prophylaxis
     Route: 048
     Dates: start: 20231027, end: 20231029
  23. ACETAMINOPHEN [Concomitant]
     Active Substance: ACETAMINOPHEN
     Indication: Premedication
     Route: 042
     Dates: start: 20231106, end: 20231113
  24. ACETAMINOPHEN [Concomitant]
     Active Substance: ACETAMINOPHEN
     Indication: Erythema
     Route: 065
     Dates: start: 20231114, end: 20231115
  25. ACETAMINOPHEN [Concomitant]
     Active Substance: ACETAMINOPHEN
     Route: 042
     Dates: start: 20231113, end: 20231113
  26. ACETAMINOPHEN [Concomitant]
     Active Substance: ACETAMINOPHEN
     Route: 042
     Dates: start: 20231114, end: 20231115
  27. ACETAMINOPHEN [Concomitant]
     Active Substance: ACETAMINOPHEN
     Route: 042
     Dates: start: 20231106, end: 20231113
  28. POLARAMINE [Concomitant]
     Active Substance: DEXCHLORPHENIRAMINE MALEATE
     Indication: Premedication
     Route: 042
     Dates: start: 20231106, end: 20231113
  29. POLARAMINE [Concomitant]
     Active Substance: DEXCHLORPHENIRAMINE MALEATE
     Route: 042
     Dates: start: 20231113, end: 20231113
  30. PREDNISONE [Concomitant]
     Active Substance: PREDNISONE
     Route: 048
     Dates: start: 20231020, end: 20231026
  31. PREDNISONE [Concomitant]
     Active Substance: PREDNISONE
     Route: 048
     Dates: start: 20231028, end: 20231029
  32. PREDNISONE [Concomitant]
     Active Substance: PREDNISONE
     Route: 042
     Dates: start: 20231030, end: 20231030
  33. PREDNISONE [Concomitant]
     Active Substance: PREDNISONE
     Route: 048
     Dates: start: 20231031, end: 20231102
  34. PRIMPERAN [Concomitant]
     Active Substance: METOCLOPRAMIDE HYDROCHLORIDE
     Route: 048
     Dates: start: 20231114, end: 20231114
  35. SOLU-MEDROL [Concomitant]
     Active Substance: METHYLPREDNISOLONE SODIUM SUCCINATE
     Route: 042
     Dates: start: 20231027, end: 20231027
  36. PIPERACILLIN SODIUM\TAZOBACTAM SODIUM [Concomitant]
     Active Substance: PIPERACILLIN SODIUM\TAZOBACTAM SODIUM
     Indication: Abdominal pain
     Route: 042
     Dates: start: 20231120, end: 20231121
  37. VALACYCLOVIR HYDROCHLORIDE [Concomitant]
     Active Substance: VALACYCLOVIR HYDROCHLORIDE
     Indication: Prophylaxis
     Route: 048
     Dates: start: 20231028
  38. AMOROLFINE HYDROCHLORIDE [Concomitant]
     Active Substance: AMOROLFINE HYDROCHLORIDE
     Dates: start: 20230909
  39. FOLIC ACID [Concomitant]
     Active Substance: FOLIC ACID
     Dates: start: 20231026

REACTIONS (6)
  - Superficial vein thrombosis [Not Recovered/Not Resolved]
  - Cytokine release syndrome [Recovered/Resolved]
  - Erythema [Recovered/Resolved]
  - Pyrexia [Recovered/Resolved]
  - Pyrexia [Not Recovered/Not Resolved]
  - Product use issue [Unknown]

NARRATIVE: CASE EVENT DATE: 20231114
